FAERS Safety Report 4500601-6 (Version None)
Quarter: 2004Q4

REPORT INFORMATION
  Report Type: 
  Country: None (occurrence: None)
  Receive Date: 20041112
  Receipt Date: 20041112
  Transmission Date: 20050328
  Serious: No
  Sender: FDA-Public Use
  Company Number: None

PATIENT
  Age: 57 Year
  Sex: Female
  Weight: 61.2356 kg

DRUGS (1)
  1. SUN BATH PROTECTIVE TANNING LOTION [Suspect]
     Dosage: APPLIED 2 TIMES
     Dates: start: 20041020

REACTIONS (4)
  - APPLICATION SITE ERYTHEMA [None]
  - APPLICATION SITE SWELLING [None]
  - APPLICATION SITE URTICARIA [None]
  - PHARMACEUTICAL PRODUCT COMPLAINT [None]
